FAERS Safety Report 21042668 (Version 2)
Quarter: 2022Q3

REPORT INFORMATION
  Report Type: Spontaneous
  Country: IT (occurrence: IT)
  Receive Date: 20220705
  Receipt Date: 20220723
  Transmission Date: 20221027
  Serious: Yes (Hospitalization, Other)
  Sender: FDA-Public Use
  Company Number: None

PATIENT
  Age: 70 Year
  Sex: Male

DRUGS (5)
  1. IMATINIB [Suspect]
     Active Substance: IMATINIB
     Indication: Chronic myeloid leukaemia
     Dosage: IN MAY/2016, IMATINIB MESYLATE REDUCED TO 200 MG DAILY
     Route: 065
     Dates: start: 201309
  2. IMATINIB [Suspect]
     Active Substance: IMATINIB
     Route: 065
     Dates: start: 2011
  3. IMATINIB [Suspect]
     Active Substance: IMATINIB
     Route: 065
     Dates: start: 2009, end: 2010
  4. IMATINIB [Suspect]
     Active Substance: IMATINIB
     Dosage: IN MAY/2016, IMATINIB MESYLATE REDUCED TO 200 MG DAILY
     Route: 065
     Dates: start: 201309
  5. INTERFERON ALFA NOS [Suspect]
     Active Substance: INTERFERON ALFA-2A OR INTERFERON ALFA-2B
     Indication: Product used for unknown indication

REACTIONS (9)
  - Anaemia [Unknown]
  - Human herpesvirus 8 infection [Recovering/Resolving]
  - Kaposi^s sarcoma [Recovering/Resolving]
  - Purpura [Unknown]
  - Acute kidney injury [Unknown]
  - Hyperplasia [Unknown]
  - Condition aggravated [Unknown]
  - Disease recurrence [Unknown]
  - Macule [Recovering/Resolving]

NARRATIVE: CASE EVENT DATE: 20100101
